FAERS Safety Report 25737141 (Version 1)
Quarter: 2025Q3

REPORT INFORMATION
  Report Type: Report from Study
  Country: PA (occurrence: PA)
  Receive Date: 20250828
  Receipt Date: 20250828
  Transmission Date: 20251021
  Serious: Yes (Hospitalization, Other)
  Sender: ALEXION PHARMACEUTICALS
  Company Number: PA-AstraZeneca-CH-00938655A

PATIENT
  Age: 66 Year
  Sex: Female

DRUGS (1)
  1. XIGDUO XR [Suspect]
     Active Substance: DAPAGLIFLOZIN PROPANEDIOL\METFORMIN HYDROCHLORIDE
     Indication: Diabetes mellitus
     Dosage: 1 DOSAGE FORM, QD

REACTIONS (4)
  - Off label use [Unknown]
  - Blood glucose increased [Unknown]
  - Diabetic ketosis [Unknown]
  - Drug ineffective [Unknown]
